FAERS Safety Report 8249699-2 (Version None)
Quarter: 2012Q2

REPORT INFORMATION
  Report Type: 
  Country: None (occurrence: None)
  Receive Date: 20120402
  Receipt Date: 20120323
  Transmission Date: 20120825
  Serious: Yes (Hospitalization, Other)
  Sender: FDA-Public Use
  Company Number: JP-VERTEX PHARMACEUTICALS INC.-AE-2012-004423

PATIENT
  Age: 53 Year
  Sex: Female

DRUGS (12)
  1. PRIMPERAN TAB [Concomitant]
  2. MAGNESIUM SULFATE [Concomitant]
  3. NITRAZEPAM [Concomitant]
  4. TELAVIC (TELAPREVIR) [Suspect]
     Indication: HEPATITIS C
     Route: 048
     Dates: start: 20111221
  5. PEGINTERFERON [Concomitant]
     Indication: HEPATITIS C
     Route: 051
     Dates: start: 20111221
  6. RIBAVIRIN [Concomitant]
     Indication: HEPATITIS C
     Route: 048
     Dates: start: 20111221
  7. RINDERON-VG [Concomitant]
  8. ZOLOFT [Concomitant]
  9. LOXONIN [Concomitant]
  10. VOLTAREN [Concomitant]
  11. MEILAX [Concomitant]
  12. SELBEX [Concomitant]

REACTIONS (10)
  - NAUSEA [None]
  - TREMOR [None]
  - SEPSIS [None]
  - INFECTION [None]
  - HYPERURICAEMIA [None]
  - ERYTHEMA MULTIFORME [None]
  - INJECTION SITE REACTION [None]
  - HAEMORRHOIDS [None]
  - CONNECTIVE TISSUE DISORDER [None]
  - DISSEMINATED INTRAVASCULAR COAGULATION [None]
